FAERS Safety Report 8905726 (Version 3)
Quarter: 2013Q2

REPORT INFORMATION
  Report Type: Report from Study
  Country: US (occurrence: US)
  Receive Date: 20121111
  Receipt Date: 20130506
  Transmission Date: 20140414
  Serious: No
  Sender: FDA-Public Use
  Company Number: PHEH2012US022182

PATIENT
  Age: 66 Year
  Sex: Female
  Weight: 61.22 kg

DRUGS (9)
  1. TASIGNA [Suspect]
     Indication: CHRONIC MYELOID LEUKAEMIA
     Dosage: 300 MG, BID
     Route: 048
  2. ALLOPURINOL [Concomitant]
     Dosage: 100 MG, UNK
  3. ZETIA [Concomitant]
     Dosage: 10 MG, UNK
  4. ZOCOR [Concomitant]
     Dosage: 20 MG, UNK
  5. MULTI-VIT [Concomitant]
  6. CALTRATE WITH VITAMIN D [Concomitant]
  7. BENADRYL [Concomitant]
     Dosage: 25 MG, UNK
  8. VITAMIN D2 [Concomitant]
     Dosage: 2000 U, UNK
  9. VIT D [Concomitant]

REACTIONS (8)
  - Gastroenteritis viral [Unknown]
  - Diarrhoea [Recovering/Resolving]
  - Vomiting [Recovering/Resolving]
  - Rash [Recovered/Resolved]
  - Alopecia [Not Recovered/Not Resolved]
  - Dysphonia [Not Recovered/Not Resolved]
  - Fatigue [Unknown]
  - Muscle spasms [Unknown]
